FAERS Safety Report 24804741 (Version 1)
Quarter: 2025Q1

REPORT INFORMATION
  Report Type: Other
  Country: GB (occurrence: GB)
  Receive Date: 20250103
  Receipt Date: 20250103
  Transmission Date: 20250409
  Serious: Yes (Other)
  Sender: LUPIN
  Company Number: GB-SUN PHARMACEUTICAL INDUSTRIES LTD-2024RR-484779

PATIENT

DRUGS (4)
  1. SERTRALINE [Suspect]
     Active Substance: SERTRALINE HYDROCHLORIDE
     Indication: Anxiety
     Route: 065
  2. DIAZEPAM [Suspect]
     Active Substance: DIAZEPAM
     Indication: Anxiety
     Route: 065
  3. ZOPICLONE [Suspect]
     Active Substance: ZOPICLONE
     Indication: Anxiety
     Route: 065
  4. CITALOPRAM [Suspect]
     Active Substance: CITALOPRAM
     Indication: Anxiety
     Route: 065

REACTIONS (2)
  - Anxiety [Unknown]
  - Drug ineffective [Unknown]
